FAERS Safety Report 8398634-5 (Version None)
Quarter: 2012Q2

REPORT INFORMATION
  Report Type: 
  Country: None (occurrence: None)
  Receive Date: 20120531
  Receipt Date: 20120522
  Transmission Date: 20120825
  Serious: Yes (Hospitalization)
  Sender: FDA-Public Use
  Company Number: US-ASTRAZENECA-2012SE29527

PATIENT
  Age: 63 Year
  Sex: Female

DRUGS (4)
  1. PROVENTIL [Concomitant]
  2. SYMBICORT [Suspect]
     Route: 055
  3. NEXIUM [Suspect]
     Route: 048
  4. ACCOLATE [Suspect]
     Route: 048

REACTIONS (3)
  - DYSPNOEA [None]
  - THERAPEUTIC RESPONSE UNEXPECTED [None]
  - CHRONIC OBSTRUCTIVE PULMONARY DISEASE [None]
